FAERS Safety Report 17183970 (Version 1)
Quarter: 2019Q4

REPORT INFORMATION
  Report Type: Spontaneous
  Country: ES (occurrence: ES)
  Receive Date: 20191220
  Receipt Date: 20191220
  Transmission Date: 20200122
  Serious: Yes (Other)
  Sender: FDA-Public Use
  Company Number: ES-ZYDUS-044762

PATIENT
  Age: 51 Year
  Sex: Female

DRUGS (3)
  1. CARVEDILOL/CARVEDILOL HYDROCHLODRIDE [Suspect]
     Active Substance: CARVEDILOL HYDROCHLORIDE
     Indication: INFLUENZA LIKE ILLNESS
     Route: 048
     Dates: start: 20190121
  2. ARICEPT [Suspect]
     Active Substance: DONEPEZIL HYDROCHLORIDE
     Indication: INFLUENZA LIKE ILLNESS
     Route: 048
     Dates: start: 20190121
  3. DICLOFENAC [Suspect]
     Active Substance: DICLOFENAC
     Indication: INFLUENZA LIKE ILLNESS
     Route: 048
     Dates: start: 20190121

REACTIONS (3)
  - Depressed level of consciousness [Unknown]
  - Intercepted product dispensing error [Unknown]
  - Nightmare [Unknown]

NARRATIVE: CASE EVENT DATE: 20190121
